FAERS Safety Report 12651881 (Version 2)
Quarter: 2016Q3

REPORT INFORMATION
  Report Type: Spontaneous
  Country: US (occurrence: US)
  Receive Date: 20160815
  Receipt Date: 20160824
  Transmission Date: 20161109
  Serious: Yes (Death, Hospitalization, Other)
  Sender: FDA-Public Use
  Company Number: US-TEVA-684140USA

PATIENT
  Age: 9 Year
  Sex: Female

DRUGS (1)
  1. PROPOFOL. [Suspect]
     Active Substance: PROPOFOL
     Indication: ANAESTHESIA
     Route: 041

REACTIONS (3)
  - Propofol infusion syndrome [Fatal]
  - Hepatorenal syndrome [Fatal]
  - Multiple organ dysfunction syndrome [Fatal]
